FAERS Safety Report 11155088 (Version 1)
Quarter: 2015Q2

REPORT INFORMATION
  Report Type: Report from Study
  Country: JP (occurrence: JP)
  Receive Date: 20150602
  Receipt Date: 20150602
  Transmission Date: 20150821
  Serious: Yes (Hospitalization, Disabling)
  Sender: FDA-Public Use
  Company Number: PHJP2015JP006896

PATIENT
  Age: 90 Year
  Sex: Female
  Weight: 46 kg

DRUGS (12)
  1. AMLODIPINE ODAN [Concomitant]
     Indication: HYPERTENSION
     Dosage: 5 MG, QD
     Route: 048
  2. EXELON [Suspect]
     Active Substance: RIVASTIGMINE TARTRATE
     Dosage: PATCH 10 (CM2) OR CONTAINS 18 MG RIVASTIGMINE BASE / DAILY DOSE= 9.5 MG
     Route: 062
     Dates: start: 20130719
  3. AMLODIPINE ODAN [Concomitant]
     Dosage: 2.5 MG, QD
     Route: 048
     Dates: start: 20130522
  4. DONEPEZIL HYDROCHLORIDE. [Concomitant]
     Active Substance: DONEPEZIL HYDROCHLORIDE
     Indication: DEMENTIA ALZHEIMER^S TYPE
     Dosage: 3 MG, QD
     Route: 048
     Dates: start: 20120713, end: 20130423
  5. TICLOPIDINE HYDROCHLORIDE. [Concomitant]
     Active Substance: TICLOPIDINE HYDROCHLORIDE
     Indication: CEREBRAL INFARCTION
     Dosage: 100 MG, BID
     Route: 048
  6. FEROTYM [Concomitant]
     Active Substance: FERROUS CITRATE\SODIUM
     Indication: IRON DEFICIENCY ANAEMIA
     Dosage: 50 MG, BID
     Route: 048
  7. EXELON [Suspect]
     Active Substance: RIVASTIGMINE TARTRATE
     Dosage: PATCH 5 (CM2) OR CONTAINS 9 MG RIVASTIGMINE BASE/ DAILY DOSE= 4.6 MG
     Route: 062
     Dates: start: 20130522, end: 20130618
  8. CALCITAMIN [Concomitant]
     Active Substance: MINERALS\VITAMINS
     Dosage: 0.25 UG, QD
     Route: 048
  9. EXELON [Suspect]
     Active Substance: RIVASTIGMINE TARTRATE
     Dosage: PATCH 7.5 (CM2) /DAILY DOSE=6.9 MG
     Route: 062
     Dates: start: 20130619, end: 20130718
  10. CALCITAMIN [Concomitant]
     Active Substance: MINERALS\VITAMINS
     Indication: OSTEOPOROSIS
     Dosage: 0.3 UG, UNK
     Route: 048
  11. EXELON [Suspect]
     Active Substance: RIVASTIGMINE TARTRATE
     Indication: DEMENTIA ALZHEIMER^S TYPE
     Dosage: PATCH 2.5 (CM2) /DAILY DOSE=1.9 MG
     Route: 062
     Dates: start: 20130424, end: 20130522
  12. LANSOPRAZOLE. [Concomitant]
     Active Substance: LANSOPRAZOLE
     Indication: GASTROOESOPHAGEAL REFLUX DISEASE
     Dosage: 15 MG, QD
     Route: 048

REACTIONS (2)
  - Femur fracture [Recovered/Resolved with Sequelae]
  - Fall [Recovered/Resolved with Sequelae]

NARRATIVE: CASE EVENT DATE: 20141124
